FAERS Safety Report 20135692 (Version 1)
Quarter: 2021Q4

REPORT INFORMATION
  Report Type: Spontaneous
  Country: US (occurrence: None)
  Receive Date: 20211201
  Receipt Date: 20211201
  Transmission Date: 20220303
  Serious: No
  Sender: FDA-Public Use
  Company Number: None

PATIENT
  Age: 72 Year
  Sex: Male
  Weight: 127 kg

DRUGS (2)
  1. GEMCITABINE HYDROCHLORIDE [Suspect]
     Active Substance: GEMCITABINE HYDROCHLORIDE
     Indication: Pancreatic carcinoma metastatic
     Dosage: FREQUENCY : AS DIRECTED;?
     Route: 042
     Dates: start: 20210325, end: 20210902
  2. PACLITAXEL [Suspect]
     Active Substance: PACLITAXEL
     Dosage: FREQUENCY : AS DIRECTED;?
     Route: 042
     Dates: start: 20210325, end: 20210902

REACTIONS (6)
  - Asthenia [None]
  - Hyperhidrosis [None]
  - Dizziness [None]
  - Dyspnoea [None]
  - Tachycardia [None]
  - Headache [None]

NARRATIVE: CASE EVENT DATE: 20210905
